FAERS Safety Report 16465785 (Version 1)
Quarter: 2019Q2

REPORT INFORMATION
  Report Type: Spontaneous
  Country: DE (occurrence: DE)
  Receive Date: 20190621
  Receipt Date: 20190621
  Transmission Date: 20190711
  Serious: Yes (Other)
  Sender: FDA-Public Use
  Company Number: DE-MYLANLABS-2019M1058002

PATIENT
  Age: 32 Year
  Sex: Female
  Weight: 85 kg

DRUGS (3)
  1. ESCITALOPRAM [Suspect]
     Active Substance: ESCITALOPRAM OXALATE
     Indication: ANXIETY DISORDER
     Dosage: 20 [MG/D ] (0. - 35.3. GESTATIONAL WEEK)
     Route: 048
     Dates: start: 20170924, end: 20180530
  2. PRESINOL [Suspect]
     Active Substance: METHYLDOPA
     Indication: PRE-ECLAMPSIA
     Dosage: 500 [MG/D  (2X250) ] (33.4. - 35.3. GESTATIONAL WEEK )
     Route: 048
     Dates: start: 20180517, end: 20180530
  3. QUETIAPINE. [Suspect]
     Active Substance: QUETIAPINE
     Indication: DEPRESSION
     Dosage: 25 [MG/D ] (0. - 35.3. GESTATIONAL WEEK)
     Route: 048
     Dates: start: 20170924, end: 20180530

REACTIONS (2)
  - Stillbirth [Recovered/Resolved]
  - Maternal exposure during pregnancy [Recovered/Resolved]
